FAERS Safety Report 4334725-3 (Version None)
Quarter: 2004Q2

REPORT INFORMATION
  Report Type: 
  Country: None (occurrence: None)
  Receive Date: 20040407
  Receipt Date: 20040407
  Transmission Date: 20050107
  Serious: Yes (Other)
  Sender: FDA-Public Use
  Company Number: None

PATIENT
  Sex: Female
  Weight: 15.8759 kg

DRUGS (4)
  1. ACETAMINOPHEN SUPPOSITORY 120 MG [Suspect]
     Indication: PYREXIA
     Dosage: 120 MG RECTALLY
     Route: 054
     Dates: start: 20040322
  2. DEXTROSE 5% [Concomitant]
  3. SODIUM CHLORIDE 0.9% [Concomitant]
  4. KCL TAB [Concomitant]

REACTIONS (4)
  - AGITATION [None]
  - CRYING [None]
  - EYE SWELLING [None]
  - HEADACHE [None]
